FAERS Safety Report 7353036-5 (Version None)
Quarter: 2011Q1

REPORT INFORMATION
  Report Type: 
  Country: None (occurrence: None)
  Receive Date: 20110315
  Receipt Date: 20110307
  Transmission Date: 20110831
  Serious: Yes (Other)
  Sender: FDA-Public Use
  Company Number: A0918062A

PATIENT
  Sex: Male

DRUGS (8)
  1. FLUNISOLIDE [Concomitant]
  2. NAPROXEN [Concomitant]
  3. PAXIL [Suspect]
     Dosage: 40MG UNKNOWN
     Dates: start: 20031029
  4. SIMVASTATIN [Concomitant]
  5. BUTALBITAL [Concomitant]
  6. ALBUTEROL [Concomitant]
  7. BACLOFEN [Concomitant]
  8. GABAPENTIN [Concomitant]

REACTIONS (5)
  - HOMICIDE [None]
  - TOXICITY TO VARIOUS AGENTS [None]
  - ABNORMAL BEHAVIOUR [None]
  - AGGRESSION [None]
  - IMPRISONMENT [None]
